FAERS Safety Report 6926857-8 (Version None)
Quarter: 2010Q3

REPORT INFORMATION
  Report Type: 
  Country: None (occurrence: None)
  Receive Date: 20100816
  Receipt Date: 20100624
  Transmission Date: 20110219
  Serious: No
  Sender: FDA-Public Use
  Company Number: US-ABBOTT-10P-163-0653485-00

PATIENT
  Sex: Male
  Weight: 70.37 kg

DRUGS (3)
  1. SIMCOR [Suspect]
     Indication: LIPOPROTEIN (A) INCREASED
     Dosage: AT BEDTIME
  2. SIMCOR [Suspect]
     Indication: LOW DENSITY LIPOPROTEIN INCREASED
  3. XALATAN [Concomitant]
     Indication: GLAUCOMA
     Dosage: EYE DROPS TO BOTH EYES

REACTIONS (1)
  - FATIGUE [None]
